FAERS Safety Report 15300975 (Version 1)
Quarter: 2018Q3

REPORT INFORMATION
  Report Type: Spontaneous
  Country: US (occurrence: US)
  Receive Date: 20180809
  Receipt Date: 20180809
  Transmission Date: 20181010
  Serious: Yes (Hospitalization)
  Sender: FDA-Public Use
  Company Number: None

PATIENT
  Age: 35 Year
  Sex: Male
  Weight: 58.7 kg

DRUGS (19)
  1. FOLIC ACID 1 MG, PO, BID [Concomitant]
  2. IMMODIUM 2 MG, PO, PRN [Concomitant]
  3. RIZATRIPTAN  5 MG, PO, DAILY [Concomitant]
  4. BACTRIM DS 800?160 MG, PO, BID ON SATURDAY AND SUNDAY [Concomitant]
  5. ULTRAM 50 MG, PO, Q4H, PRN [Concomitant]
  6. VANCOMYCIN 125 MG, PO, Q6H [Concomitant]
  7. BIOTENE SOLUTION 30ML TID PRN [Concomitant]
  8. NYSTATIN 100,000 UNIT/ML ORAL SUSP 5ML 4 QID [Concomitant]
  9. PROTONIX 40 MG, PO DAILY [Concomitant]
  10. COMPAZINE 10 MG, PO Q6H, PRN [Concomitant]
  11. VALACYCLOVIR 1 GM 1/2 TAB, PO, BID [Concomitant]
  12. VALPORIC ACID [Suspect]
     Active Substance: VALPROIC ACID
     Indication: ACUTE MYELOID LEUKAEMIA
     Route: 048
     Dates: start: 20180521
  13. ATIVAN 1 MG, PO Q6H, PRN [Concomitant]
  14. OLANZAPINE 10MG, PO, QHS [Concomitant]
  15. AZACITIDINE. [Suspect]
     Active Substance: AZACITIDINE
     Indication: ACUTE MYELOID LEUKAEMIA
     Route: 058
     Dates: start: 20180521
  16. MULTIPLE VITAMIN 1 TAB, PO, DAILY [Concomitant]
  17. POSACONAZOLE 3 TAB, PO, DAILY [Concomitant]
  18. ZOFRAN 4 MG PO, Q8H, PRN [Concomitant]
  19. TACROLIMUS 1 MG, PO, Q3DAYS [Concomitant]

REACTIONS (2)
  - Arthralgia [None]
  - Joint swelling [None]

NARRATIVE: CASE EVENT DATE: 20180731
